FAERS Safety Report 5836621-9 (Version None)
Quarter: 2008Q3

REPORT INFORMATION
  Report Type: 
  Country: None (occurrence: None)
  Receive Date: 20080807
  Receipt Date: 20080728
  Transmission Date: 20090109
  Serious: Yes (Other)
  Sender: FDA-Public Use
  Company Number: US-ELI_LILLY_AND_COMPANY-US200808000115

PATIENT
  Age: 55 Year
  Sex: Male

DRUGS (2)
  1. GEMZAR [Suspect]
     Indication: PANCREATIC CARCINOMA METASTATIC
     Dosage: 50 MG/M2, EVERY 6 HRS
     Route: 033
  2. SODIUM CHLORIDE 0.9% [Concomitant]
     Dosage: 2 LITER, EVERY 6 HRS
     Route: 033

REACTIONS (1)
  - ILEUS [None]
